FAERS Safety Report 17077419 (Version 1)
Quarter: 2019Q4

REPORT INFORMATION
  Report Type: Spontaneous
  Country: ES (occurrence: ES)
  Receive Date: 20191126
  Receipt Date: 20191126
  Transmission Date: 20200122
  Serious: Yes (Other)
  Sender: FDA-Public Use
  Company Number: ES-PFIZER INC-2019506844

PATIENT
  Age: 3 Year
  Sex: Male
  Weight: 12.6 kg

DRUGS (1)
  1. ZITROMAX [Suspect]
     Active Substance: AZITHROMYCIN
     Indication: RESPIRATORY TRACT INFECTION
     Dosage: 3 ML, 1X/DAY
     Route: 048
     Dates: start: 20190829, end: 20190830

REACTIONS (2)
  - Diarrhoea haemorrhagic [Recovered/Resolved]
  - Dairy intolerance [Recovered/Resolved]

NARRATIVE: CASE EVENT DATE: 20190829
